FAERS Safety Report 20950191 (Version 1)
Quarter: 2022Q2

REPORT INFORMATION
  Report Type: Spontaneous
  Country: US (occurrence: None)
  Receive Date: 20220610
  Receipt Date: 20220610
  Transmission Date: 20220720
  Serious: Yes (Hospitalization)
  Sender: FDA-Public Use
  Company Number: None

PATIENT
  Sex: Male
  Weight: 105.2 kg

DRUGS (17)
  1. TAFINLAR [Suspect]
     Active Substance: DABRAFENIB MESYLATE
     Indication: Malignant melanoma
     Dosage: FREQUENCY : TWICE A DAY;?
     Route: 048
  2. MEKINIST [Suspect]
     Active Substance: TRAMETINIB DIMETHYL SULFOXIDE
     Indication: Malignant melanoma
     Dosage: FREQUENCY : DAILY;?
     Route: 048
  3. AMIODARONE HYDROCHLORIDE [Concomitant]
     Active Substance: AMIODARONE HYDROCHLORIDE
  4. ASPIRIN [Concomitant]
     Active Substance: ASPIRIN
  5. ATORVASTATIN CALCIUM [Concomitant]
     Active Substance: ATORVASTATIN CALCIUM
  6. Efudex External Cream 5% [Concomitant]
  7. CARVEDILOL [Concomitant]
     Active Substance: CARVEDILOL
  8. ELIQUIS [Concomitant]
     Active Substance: APIXABAN
  9. KEPPRA [Concomitant]
     Active Substance: LEVETIRACETAM
  10. Ketoconazole External Shampoo 2% [Concomitant]
  11. Lidocaine-Prilocaine External Cream [Concomitant]
  12. LISINOPRIL [Concomitant]
     Active Substance: LISINOPRIL
  13. MIRALAX [Concomitant]
     Active Substance: POLYETHYLENE GLYCOL 3350
  14. MIRTAZAPINE [Concomitant]
     Active Substance: MIRTAZAPINE
  15. SERTRALINE HYDROCHLORIDE [Concomitant]
     Active Substance: SERTRALINE HYDROCHLORIDE
  16. Triamcinolone Acetonide External Oil [Concomitant]
  17. VIMPAT [Concomitant]
     Active Substance: LACOSAMIDE

REACTIONS (2)
  - Vomiting [None]
  - Pyrexia [None]
